FAERS Safety Report 9830753 (Version 1)
Quarter: 2014Q1

REPORT INFORMATION
  Report Type: Spontaneous
  Country: CA (occurrence: CA)
  Receive Date: 20140120
  Receipt Date: 20140120
  Transmission Date: 20141002
  Serious: Yes (Other)
  Sender: FDA-Public Use
  Company Number: CA-MERCK-1401CAN006935

PATIENT
  Age: 32 Year
  Sex: Female

DRUGS (6)
  1. SAPHRIS [Suspect]
     Dosage: 5 MG, 3 EVERY 1 DAY
     Route: 048
  2. LAMOTRIGINE [Concomitant]
     Route: 065
  3. RANITIDINE [Concomitant]
     Route: 065
  4. SEROQUEL [Concomitant]
     Route: 065
  5. SEROQUEL XR [Concomitant]
     Route: 065
  6. ZOLOFT [Concomitant]
     Route: 065

REACTIONS (2)
  - Dysphagia [Unknown]
  - Swelling face [Unknown]
